FAERS Safety Report 11327583 (Version 1)
Quarter: 2015Q3

REPORT INFORMATION
  Report Type: Spontaneous
  Country: TN (occurrence: TN)
  Receive Date: 20150731
  Receipt Date: 20150731
  Transmission Date: 20151125
  Serious: Yes (Other)
  Sender: FDA-Public Use
  Company Number: PHHY2015TN088483

PATIENT
  Age: 24 Year
  Sex: Male

DRUGS (2)
  1. TRAMADOL. [Suspect]
     Active Substance: TRAMADOL
     Indication: PAIN
     Dosage: 250 MG, QD
     Route: 042
  2. TRAMADOL. [Suspect]
     Active Substance: TRAMADOL
     Dosage: 750 MG, QD
     Route: 042

REACTIONS (6)
  - Nausea [Unknown]
  - Dysphoria [Unknown]
  - Drug dependence [Unknown]
  - Myalgia [Unknown]
  - Insomnia [Unknown]
  - Withdrawal syndrome [Unknown]
